FAERS Safety Report 7365416-2 (Version None)
Quarter: 2011Q1

REPORT INFORMATION
  Report Type: 
  Country: None (occurrence: None)
  Receive Date: 20110315
  Receipt Date: 20110315
  Transmission Date: 20110831
  Serious: Yes (Life-Threatening, Disabling, Other)
  Sender: FDA-Public Use
  Company Number: None

PATIENT
  Sex: Male
  Weight: 102.0593 kg

DRUGS (1)
  1. OXYCONTIN [Suspect]
     Indication: INCORRECT DRUG ADMINISTRATION DURATION
     Dosage: 2 TABS 2 X A DAY

REACTIONS (1)
  - ADVERSE DRUG REACTION [None]
